FAERS Safety Report 7205807-3 (Version None)
Quarter: 2010Q4

REPORT INFORMATION
  Report Type: 
  Country: None (occurrence: None)
  Receive Date: 20101231
  Receipt Date: 20101227
  Transmission Date: 20110411
  Serious: Yes (Hospitalization)
  Sender: FDA-Public Use
  Company Number: JP-MERCK-0912USA02523

PATIENT
  Age: 79 Year
  Sex: Female
  Weight: 50 kg

DRUGS (10)
  1. FOSAMAX [Suspect]
     Indication: OSTEOPOROSIS
     Route: 048
     Dates: start: 20091207, end: 20091212
  2. FOSAMAX [Suspect]
     Route: 048
     Dates: start: 20091026, end: 20091031
  3. FOSAMAX [Suspect]
     Route: 048
     Dates: start: 20090513, end: 20090513
  4. FOSAMAX [Suspect]
     Route: 048
     Dates: start: 20090518, end: 20090518
  5. ALFAROL [Concomitant]
     Dosage: AFTER THE DAILY DOSAGE UNKNOWN AND THE BREAKFAST
     Route: 048
  6. TAKEPRON [Concomitant]
     Dosage: AFTER THE BREAKFAST
     Route: 048
     Dates: start: 20091207, end: 20091212
  7. MAALOX (ALUMINUM HYDROXIDE (+) MAGNESIUM HYDROXIDE) [Concomitant]
     Dosage: AND, BEFORE RETIRING AFTER THE MEAL
     Route: 048
     Dates: start: 20091210, end: 20091214
  8. TRANSAMIN [Concomitant]
     Dosage: EVERY.. AFTER THE MEAL
     Route: 048
     Dates: start: 20091207, end: 20091213
  9. ADONA [Concomitant]
     Dosage: EVERY.. AFTER THE MEAL
     Route: 048
     Dates: start: 20091207, end: 20091213
  10. KETOPROFEN [Concomitant]
     Route: 061

REACTIONS (7)
  - CHEST DISCOMFORT [None]
  - EROSIVE OESOPHAGITIS [None]
  - HAEMOPTYSIS [None]
  - INAPPROPRIATE SCHEDULE OF DRUG ADMINISTRATION [None]
  - OESOPHAGITIS HAEMORRHAGIC [None]
  - OVERDOSE [None]
  - REFLUX OESOPHAGITIS [None]
